FAERS Safety Report 24715940 (Version 1)
Quarter: 2024Q4

REPORT INFORMATION
  Report Type: Spontaneous
  Country: IT (occurrence: IT)
  Receive Date: 20241210
  Receipt Date: 20241210
  Transmission Date: 20250115
  Serious: Yes (Hospitalization)
  Sender: Haleon PLC
  Company Number: IT-MINISAL02-631555

PATIENT
  Age: 93 Year
  Sex: Male

DRUGS (9)
  1. PANTOPRAZOLE [Suspect]
     Active Substance: PANTOPRAZOLE
     Indication: Drug abuse
     Dosage: TIME INTERVAL: TOTAL: 2 DF, TOTAL
     Dates: start: 20200707, end: 20200707
  2. OXYBUTYNIN CHLORIDE [Suspect]
     Active Substance: OXYBUTYNIN CHLORIDE
     Indication: Drug abuse
     Dosage: TIME INTERVAL: TOTAL
     Route: 048
     Dates: start: 20200707, end: 20200707
  3. OXYBUTYNIN CHLORIDE [Suspect]
     Active Substance: OXYBUTYNIN CHLORIDE
     Dosage: TIME INTERVAL: TOTAL
     Route: 048
     Dates: start: 20200707, end: 20200707
  4. DUTASTERIDE [Suspect]
     Active Substance: DUTASTERIDE
     Indication: Drug abuse
     Dosage: TIME INTERVAL: TOTAL: 7.5 MG, TOTAL
     Dates: start: 20200707, end: 20200707
  5. ALFUZOSIN HYDROCHLORIDE [Suspect]
     Active Substance: ALFUZOSIN HYDROCHLORIDE
     Indication: Drug abuse
     Dosage: TIME INTERVAL: TOTAL: 60 MG, TOTAL
     Route: 048
     Dates: start: 20200707, end: 20200707
  6. LASIX [Suspect]
     Active Substance: FUROSEMIDE
     Indication: Product used for unknown indication
     Dosage: 50 MG, TOTAL
     Dates: start: 20200707, end: 20200707
  7. LEVOSULPIRIDE [Suspect]
     Active Substance: LEVOSULPIRIDE
     Indication: Product used for unknown indication
     Dosage: TIME INTERVAL: TOTAL: 50 MG, TOTAL
     Dates: start: 20200707, end: 20200707
  8. RIVAROXABAN [Suspect]
     Active Substance: RIVAROXABAN
     Indication: Drug abuse
     Dosage: TIME INTERVAL: TOTAL: 45 MG, TOTAL
     Dates: start: 20200707, end: 20200707
  9. LEUCOVORIN CALCIUM [Suspect]
     Active Substance: LEUCOVORIN CALCIUM
     Indication: Product used for unknown indication
     Dosage: TIME INTERVAL: TOTAL: 45 MG, TOTAL
     Dates: start: 20200707, end: 20200707

REACTIONS (2)
  - Intentional overdose [Not Recovered/Not Resolved]
  - Disorganised speech [Not Recovered/Not Resolved]

NARRATIVE: CASE EVENT DATE: 20200707
